FAERS Safety Report 4578016-4 (Version None)
Quarter: 2005Q1

REPORT INFORMATION
  Report Type: 
  Country: None (occurrence: None)
  Receive Date: 20050127
  Receipt Date: 20040830
  Transmission Date: 20050727
  Serious: No
  Sender: FDA-Public Use
  Company Number: USA040876990

PATIENT
  Age: 57 Year
  Sex: Female
  Weight: 57 kg

DRUGS (2)
  1. STRATTERA [Suspect]
     Dosage: 40 MG DAY
     Dates: start: 20400827, end: 20040828
  2. WELLBUTRIN (IBUPROPION HYDROCHLORIDE) [Concomitant]

REACTIONS (6)
  - COLD SWEAT [None]
  - DIZZINESS [None]
  - FEELING ABNORMAL [None]
  - FORMICATION [None]
  - HYPERHIDROSIS [None]
  - NAUSEA [None]
